FAERS Safety Report 17286036 (Version 1)
Quarter: 2020Q1

REPORT INFORMATION
  Report Type: Spontaneous
  Country: NL (occurrence: NL)
  Receive Date: 20200118
  Receipt Date: 20200118
  Transmission Date: 20200409
  Serious: Yes (Other)
  Sender: FDA-Public Use
  Company Number: NL-AUROBINDO-AUR-APL-2020-002632

PATIENT
  Sex: Male
  Weight: 75 kg

DRUGS (2)
  1. CARBOPLATIN. [Suspect]
     Active Substance: CARBOPLATIN
     Indication: MESOTHELIOMA MALIGNANT
     Dosage: UNK
     Route: 065
     Dates: start: 201907, end: 201910
  2. PEMETREXED. [Suspect]
     Active Substance: PEMETREXED
     Indication: MESOTHELIOMA MALIGNANT
     Dosage: UNK
     Route: 065
     Dates: start: 201907, end: 201910

REACTIONS (1)
  - Disease progression [Unknown]
